FAERS Safety Report 8063084-8 (Version None)
Quarter: 2012Q1

REPORT INFORMATION
  Report Type: 
  Country: None (occurrence: None)
  Receive Date: 20120123
  Receipt Date: 20120117
  Transmission Date: 20120608
  Serious: Yes (Other)
  Sender: FDA-Public Use
  Company Number: US-PFIZER INC-2012013509

PATIENT
  Sex: Female

DRUGS (3)
  1. LEVOTHYROXINE [Concomitant]
     Dosage: UNK
  2. PREMARIN [Suspect]
     Indication: HORMONE REPLACEMENT THERAPY
     Dosage: UNK, 1X/DAY
     Route: 048
  3. PREMARIN [Suspect]
     Dosage: UNK
     Route: 048

REACTIONS (1)
  - VAGINAL CANCER STAGE 0 [None]
